FAERS Safety Report 25707311 (Version 1)
Quarter: 2025Q3

REPORT INFORMATION
  Report Type: Report from Study
  Country: US (occurrence: US)
  Receive Date: 20250820
  Receipt Date: 20250820
  Transmission Date: 20251021
  Serious: Yes (Hospitalization)
  Sender: JAZZ
  Company Number: US-JAZZ PHARMACEUTICALS-2025-US-020060

PATIENT
  Sex: Male

DRUGS (1)
  1. EPIDIOLEX [Suspect]
     Active Substance: CANNABIDIOL
     Indication: Infantile spasms
     Dosage: 1.4 MILLILITER, BID (1.4 MILLILITRES IN THE MORNING AND 1.4 MILLILITRES BEFORE BEDTIME)
     Dates: start: 202507

REACTIONS (2)
  - Hospitalisation [Unknown]
  - Off label use [Unknown]
